FAERS Safety Report 11331922 (Version 1)
Quarter: 2015Q3

REPORT INFORMATION
  Report Type: Spontaneous
  Country: US (occurrence: US)
  Receive Date: 20150803
  Receipt Date: 20150803
  Transmission Date: 20151125
  Serious: Yes (Other)
  Sender: FDA-Public Use
  Company Number: US-ELI_LILLY_AND_COMPANY-US200804006580

PATIENT
  Age: 28 Year
  Sex: Female

DRUGS (4)
  1. CELEXA [Concomitant]
     Active Substance: CITALOPRAM HYDROBROMIDE
     Indication: DEPRESSION
     Dosage: 20 MG, DAILY (1/D)
     Dates: start: 20080123
  2. ZYPREXA [Suspect]
     Active Substance: OLANZAPINE
     Indication: BIPOLAR II DISORDER
     Dosage: 10 MG, EACH EVENING
     Route: 048
     Dates: start: 20080319, end: 20080420
  3. ZYPREXA [Suspect]
     Active Substance: OLANZAPINE
     Dosage: 15 MG, EACH EVENING
     Route: 048
     Dates: start: 20080421
  4. LORAZEPAM. [Concomitant]
     Active Substance: LORAZEPAM
     Indication: ANXIETY
     Dosage: 1 MG, 2/D
     Dates: start: 20080207

REACTIONS (2)
  - Abortion spontaneous [Unknown]
  - Exposure during pregnancy [Recovered/Resolved]

NARRATIVE: CASE EVENT DATE: 200803
